FAERS Safety Report 6880920-9 (Version None)
Quarter: 2010Q2

REPORT INFORMATION
  Report Type: 
  Country: None (occurrence: None)
  Receive Date: 20100630
  Receipt Date: 20100528
  Transmission Date: 20101027
  Serious: No
  Sender: FDA-Public Use
  Company Number: 1000014160

PATIENT
  Age: 82 Year
  Sex: Male

DRUGS (6)
  1. BYSTOLIC [Suspect]
     Indication: ATRIAL FIBRILLATION
     Dosage: ORAL
     Route: 048
     Dates: start: 20091001
  2. ZEBETA [Suspect]
     Indication: ATRIAL FIBRILLATION
     Dosage: ORAL
     Route: 048
     Dates: start: 20091001
  3. ALPRAZOLAM [Concomitant]
  4. TUMS [Concomitant]
  5. LUCENTIS [Concomitant]
  6. RANITIDINE [Concomitant]

REACTIONS (3)
  - BLOOD PRESSURE DECREASED [None]
  - FATIGUE [None]
  - WEIGHT DECREASED [None]
